FAERS Safety Report 4499806-2 (Version None)
Quarter: 2004Q4

REPORT INFORMATION
  Report Type: 
  Country: None (occurrence: None)
  Receive Date: 20041110
  Receipt Date: 20041110
  Transmission Date: 20050328
  Serious: No
  Sender: FDA-Public Use
  Company Number: None

PATIENT
  Age: 74 Year
  Sex: Male
  Weight: 60.2 kg

DRUGS (21)
  1. IRON DEXTRAN [Suspect]
     Indication: ANAEMIA
     Dosage: 25MG,25MG ONC, IV PUSH
     Route: 042
  2. IRON DEXTRAN [Suspect]
     Indication: MINERAL SUPPLEMENTATION
     Dosage: 25MG,25MG ONC, IV PUSH
     Route: 042
  3. FERROUS SO4 [Concomitant]
  4. FOLIC ACID [Concomitant]
  5. LISINOPRIL [Concomitant]
  6. OMEPRAZOLE [Concomitant]
  7. POTASSIUM CHLORIDE [Concomitant]
  8. EPOETIN ALFA, RECOMB [Concomitant]
  9. ALBUTEROL SO4 [Concomitant]
  10. ALBUTEROL SULFATE AND IPRATROPIUM BROMIDE [Concomitant]
  11. ASPIRIN [Concomitant]
  12. CLOPIDOGREL BISULFATE [Concomitant]
  13. DIAZEPAM [Concomitant]
  14. IPATROPIUM BROMIDE [Concomitant]
  15. METOPROLOL SUCCINATE [Concomitant]
  16. MULTIVITAMIN/MINERALS THERAPEUT [Concomitant]
  17. SALMETEROL [Concomitant]
  18. SENNOSIDES [Concomitant]
  19. SIMVASTATIN [Concomitant]
  20. ACETAZOLAMIDE [Concomitant]
  21. FUROSEMIDE [Concomitant]

REACTIONS (1)
  - HYPERSENSITIVITY [None]
